FAERS Safety Report 5033602-2 (Version None)
Quarter: 2006Q2

REPORT INFORMATION
  Report Type: 
  Country: None (occurrence: None)
  Receive Date: 20060623
  Receipt Date: 20060608
  Transmission Date: 20061013
  Serious: Yes (Other)
  Sender: FDA-Public Use
  Company Number: US-AMGEN-STX182386

PATIENT
  Sex: Female

DRUGS (2)
  1. ENBREL [Suspect]
     Indication: PSORIATIC ARTHROPATHY
     Route: 058
     Dates: start: 20060518
  2. ARTHROTEC [Concomitant]
     Dates: end: 20060501

REACTIONS (6)
  - ARTHRALGIA [None]
  - HAEMATOCHEZIA [None]
  - HAEMORRHAGE [None]
  - JOINT STIFFNESS [None]
  - RECTAL HAEMORRHAGE [None]
  - STOMACH DISCOMFORT [None]
